FAERS Safety Report 4576537-1 (Version None)
Quarter: 2005Q1

REPORT INFORMATION
  Report Type: 
  Country: None (occurrence: None)
  Receive Date: 20050119
  Receipt Date: 20040510
  Transmission Date: 20050727
  Serious: Yes (Hospitalization)
  Sender: FDA-Public Use
  Company Number: A03200401507

PATIENT
  Age: 67 Year
  Sex: Male
  Weight: 120.2032 kg

DRUGS (9)
  1. PLAVIX [Suspect]
     Indication: IMPLANTABLE DEFIBRILLATOR INSERTION
     Dosage: 75 MG QD - ORAL
     Route: 048
     Dates: start: 20030101, end: 20040501
  2. PLAVIX [Suspect]
     Indication: STENT PLACEMENT
     Dosage: 75 MG QD - ORAL
     Route: 048
     Dates: start: 20030101, end: 20040501
  3. FOLIC ACID [Concomitant]
  4. POTASSIUM CHLORIDE [Concomitant]
  5. FUROSEMIDE [Concomitant]
  6. LISINOPRIL [Concomitant]
  7. PRAVASTATIN [Concomitant]
  8. EZETIMIBE [Concomitant]
  9. FISH OIL [Concomitant]

REACTIONS (1)
  - GASTROINTESTINAL HAEMORRHAGE [None]
